FAERS Safety Report 22099619 (Version 12)
Quarter: 2025Q2

REPORT INFORMATION
  Report Type: Report from Study
  Country: DE (occurrence: DE)
  Receive Date: 20230315
  Receipt Date: 20250520
  Transmission Date: 20250717
  Serious: Yes (Hospitalization, Other)
  Sender: MYLAN
  Company Number: DE-ROCHE-2633079

PATIENT
  Age: 51 Year
  Sex: Female
  Weight: 76 kg

DRUGS (68)
  1. PREGABALIN [Suspect]
     Active Substance: PREGABALIN
     Indication: Product used for unknown indication
     Dosage: 50 MILLIGRAM, BID (50 MG, 2-0-2, 2X/DAY)
     Route: 065
  2. PREGABALIN [Suspect]
     Active Substance: PREGABALIN
     Dosage: 50 MILLIGRAM, BID (50 MG, 2-0-2, 2X/DAY)
  3. PREGABALIN [Suspect]
     Active Substance: PREGABALIN
     Dosage: 50 MILLIGRAM, BID (50 MG, 2-0-2, 2X/DAY)
  4. PREGABALIN [Suspect]
     Active Substance: PREGABALIN
     Dosage: 50 MILLIGRAM, BID (50 MG, 2-0-2, 2X/DAY)
     Route: 065
  5. PREGABALIN [Suspect]
     Active Substance: PREGABALIN
     Route: 065
  6. PREGABALIN [Suspect]
     Active Substance: PREGABALIN
  7. PREGABALIN [Suspect]
     Active Substance: PREGABALIN
  8. PREGABALIN [Suspect]
     Active Substance: PREGABALIN
     Route: 065
  9. OCREVUS [Suspect]
     Active Substance: OCRELIZUMAB
     Indication: Secondary progressive multiple sclerosis
  10. OCREVUS [Suspect]
     Active Substance: OCRELIZUMAB
     Indication: Relapsing-remitting multiple sclerosis
  11. OCREVUS [Suspect]
     Active Substance: OCRELIZUMAB
     Route: 042
  12. OCREVUS [Suspect]
     Active Substance: OCRELIZUMAB
     Route: 042
  13. OCREVUS [Suspect]
     Active Substance: OCRELIZUMAB
  14. OCREVUS [Suspect]
     Active Substance: OCRELIZUMAB
     Route: 042
  15. OCREVUS [Suspect]
     Active Substance: OCRELIZUMAB
  16. OCREVUS [Suspect]
     Active Substance: OCRELIZUMAB
     Route: 042
  17. OCREVUS [Suspect]
     Active Substance: OCRELIZUMAB
     Route: 042
  18. OCREVUS [Suspect]
     Active Substance: OCRELIZUMAB
  19. OCREVUS [Suspect]
     Active Substance: OCRELIZUMAB
  20. OCREVUS [Suspect]
     Active Substance: OCRELIZUMAB
     Route: 042
  21. OCREVUS [Suspect]
     Active Substance: OCRELIZUMAB
     Route: 042
  22. OCREVUS [Suspect]
     Active Substance: OCRELIZUMAB
  23. OCREVUS [Suspect]
     Active Substance: OCRELIZUMAB
  24. OCREVUS [Suspect]
     Active Substance: OCRELIZUMAB
     Route: 042
  25. OCREVUS [Suspect]
     Active Substance: OCRELIZUMAB
     Route: 042
  26. OCREVUS [Suspect]
     Active Substance: OCRELIZUMAB
  27. OCREVUS [Suspect]
     Active Substance: OCRELIZUMAB
  28. OCREVUS [Suspect]
     Active Substance: OCRELIZUMAB
     Route: 042
  29. OCREVUS [Suspect]
     Active Substance: OCRELIZUMAB
     Route: 042
  30. OCREVUS [Suspect]
     Active Substance: OCRELIZUMAB
     Route: 042
  31. OCREVUS [Suspect]
     Active Substance: OCRELIZUMAB
  32. OCREVUS [Suspect]
     Active Substance: OCRELIZUMAB
  33. COMIRNATY (TOZINAMERAN) [Suspect]
     Active Substance: TOZINAMERAN
     Indication: COVID-19 prophylaxis
     Dates: start: 20210603, end: 20210603
  34. COMIRNATY (TOZINAMERAN) [Suspect]
     Active Substance: TOZINAMERAN
     Indication: COVID-19 immunisation
     Dates: start: 20210603, end: 20210603
  35. COMIRNATY (TOZINAMERAN) [Suspect]
     Active Substance: TOZINAMERAN
     Route: 030
     Dates: start: 20210603, end: 20210603
  36. COMIRNATY (TOZINAMERAN) [Suspect]
     Active Substance: TOZINAMERAN
     Route: 030
     Dates: start: 20210603, end: 20210603
  37. COMIRNATY (TOZINAMERAN) [Suspect]
     Active Substance: TOZINAMERAN
     Dates: start: 20210729, end: 20210729
  38. COMIRNATY (TOZINAMERAN) [Suspect]
     Active Substance: TOZINAMERAN
     Dates: start: 20210729, end: 20210729
  39. COMIRNATY (TOZINAMERAN) [Suspect]
     Active Substance: TOZINAMERAN
     Route: 030
     Dates: start: 20210729, end: 20210729
  40. COMIRNATY (TOZINAMERAN) [Suspect]
     Active Substance: TOZINAMERAN
     Route: 030
     Dates: start: 20210729, end: 20210729
  41. VITAMIN B12 [Concomitant]
     Active Substance: CYANOCOBALAMIN
  42. VITAMIN B12 [Concomitant]
     Active Substance: CYANOCOBALAMIN
     Route: 065
  43. VITAMIN B12 [Concomitant]
     Active Substance: CYANOCOBALAMIN
     Route: 065
  44. VITAMIN B12 [Concomitant]
     Active Substance: CYANOCOBALAMIN
  45. DIETARY SUPPLEMENT\HERBALS [Concomitant]
     Active Substance: DIETARY SUPPLEMENT\HERBALS
  46. DIETARY SUPPLEMENT\HERBALS [Concomitant]
     Active Substance: DIETARY SUPPLEMENT\HERBALS
     Route: 065
  47. DIETARY SUPPLEMENT\HERBALS [Concomitant]
     Active Substance: DIETARY SUPPLEMENT\HERBALS
     Route: 065
  48. DIETARY SUPPLEMENT\HERBALS [Concomitant]
     Active Substance: DIETARY SUPPLEMENT\HERBALS
  49. METAMIZOLE [Concomitant]
     Active Substance: METAMIZOLE
  50. METAMIZOLE [Concomitant]
     Active Substance: METAMIZOLE
     Route: 065
  51. METAMIZOLE [Concomitant]
     Active Substance: METAMIZOLE
     Route: 065
  52. METAMIZOLE [Concomitant]
     Active Substance: METAMIZOLE
  53. TIZANIDINE HYDROCHLORIDE [Concomitant]
     Active Substance: TIZANIDINE HYDROCHLORIDE
  54. TIZANIDINE HYDROCHLORIDE [Concomitant]
     Active Substance: TIZANIDINE HYDROCHLORIDE
     Route: 065
  55. TIZANIDINE HYDROCHLORIDE [Concomitant]
     Active Substance: TIZANIDINE HYDROCHLORIDE
     Route: 065
  56. TIZANIDINE HYDROCHLORIDE [Concomitant]
     Active Substance: TIZANIDINE HYDROCHLORIDE
  57. XYLOMETAZOLINE HYDROCHLORIDE [Concomitant]
     Active Substance: XYLOMETAZOLINE HYDROCHLORIDE
  58. XYLOMETAZOLINE HYDROCHLORIDE [Concomitant]
     Active Substance: XYLOMETAZOLINE HYDROCHLORIDE
     Route: 065
  59. XYLOMETAZOLINE HYDROCHLORIDE [Concomitant]
     Active Substance: XYLOMETAZOLINE HYDROCHLORIDE
     Route: 065
  60. XYLOMETAZOLINE HYDROCHLORIDE [Concomitant]
     Active Substance: XYLOMETAZOLINE HYDROCHLORIDE
  61. VITAMIN D3 [Concomitant]
     Active Substance: CHOLECALCIFEROL
     Indication: Hypocalcaemia
  62. VITAMIN D3 [Concomitant]
     Active Substance: CHOLECALCIFEROL
     Route: 065
  63. VITAMIN D3 [Concomitant]
     Active Substance: CHOLECALCIFEROL
     Route: 065
  64. VITAMIN D3 [Concomitant]
     Active Substance: CHOLECALCIFEROL
  65. TIZANIDINE [Concomitant]
     Active Substance: TIZANIDINE
  66. TIZANIDINE [Concomitant]
     Active Substance: TIZANIDINE
     Route: 065
  67. TIZANIDINE [Concomitant]
     Active Substance: TIZANIDINE
     Route: 065
  68. TIZANIDINE [Concomitant]
     Active Substance: TIZANIDINE

REACTIONS (44)
  - Multiple sclerosis [Unknown]
  - Multiple sclerosis relapse [Not Recovered/Not Resolved]
  - Suicidal ideation [Recovered/Resolved]
  - Mental disorder [Not Recovered/Not Resolved]
  - Dizziness [Recovered/Resolved]
  - Deafness [Recovered/Resolved]
  - Shoulder fracture [Recovered/Resolved]
  - Fall [Unknown]
  - Oropharyngeal pain [Recovered/Resolved]
  - COVID-19 [Recovering/Resolving]
  - Pulmonary pain [Recovered/Resolved]
  - Tonsillitis [Recovered/Resolved]
  - Emotional disorder [Not Recovered/Not Resolved]
  - Alopecia [Recovered/Resolved]
  - Morton^s neuralgia [Unknown]
  - Muscular weakness [Recovered/Resolved]
  - Chest pain [Recovered/Resolved]
  - Genital tract inflammation [Recovered/Resolved]
  - Pruritus genital [Not Recovered/Not Resolved]
  - Illness [Recovered/Resolved]
  - White blood cell count increased [Recovered/Resolved]
  - Paraesthesia ear [Recovered/Resolved]
  - Limb discomfort [Not Recovered/Not Resolved]
  - Eructation [Not Recovered/Not Resolved]
  - Genital burning sensation [Not Recovered/Not Resolved]
  - Gait disturbance [Not Recovered/Not Resolved]
  - Visual impairment [Not Recovered/Not Resolved]
  - Muscle spasticity [Recovering/Resolving]
  - Condition aggravated [Unknown]
  - Vitamin B12 increased [Not Recovered/Not Resolved]
  - Liver function test increased [Not Recovered/Not Resolved]
  - Nasal dryness [Not Recovered/Not Resolved]
  - Nasopharyngitis [Recovered/Resolved]
  - Fatigue [Recovered/Resolved]
  - Asthenia [Recovered/Resolved]
  - Cough [Recovered/Resolved]
  - Arthralgia [Not Recovered/Not Resolved]
  - Paraesthesia [Recovered/Resolved]
  - Panic attack [Recovered/Resolved]
  - Pain in extremity [Not Recovered/Not Resolved]
  - Lacrimation increased [Not Recovered/Not Resolved]
  - Inappropriate schedule of product administration [Unknown]
  - Weight decreased [Not Recovered/Not Resolved]
  - Wound complication [Recovered/Resolved]

NARRATIVE: CASE EVENT DATE: 20180201
